FAERS Safety Report 14328262 (Version 1)
Quarter: 2017Q4

REPORT INFORMATION
  Report Type: Spontaneous
  Country: US (occurrence: US)
  Receive Date: 20171227
  Receipt Date: 20171227
  Transmission Date: 20180321
  Serious: No
  Sender: FDA-Public Use
  Company Number: US-PFIZER INC-2017548223

PATIENT
  Age: 77 Year
  Sex: Female
  Weight: 72 kg

DRUGS (2)
  1. IBRANCE [Suspect]
     Active Substance: PALBOCICLIB
     Indication: BREAST CANCER FEMALE
     Dosage: 125 MG, 1X/DAY
     Dates: start: 20171201
  2. LETROZOLE. [Concomitant]
     Active Substance: LETROZOLE
     Indication: BREAST CANCER FEMALE
     Dosage: 2.5 MG, 1X/DAY

REACTIONS (6)
  - Nausea [Recovering/Resolving]
  - Oral pain [Not Recovered/Not Resolved]
  - Tongue erythema [Not Recovered/Not Resolved]
  - Plicated tongue [Not Recovered/Not Resolved]
  - Gingival erythema [Not Recovered/Not Resolved]
  - Gingival injury [Not Recovered/Not Resolved]

NARRATIVE: CASE EVENT DATE: 20171214
